FAERS Safety Report 20181819 (Version 1)
Quarter: 2021Q4

REPORT INFORMATION
  Report Type: Spontaneous
  Country: US (occurrence: US)
  Receive Date: 20211214
  Receipt Date: 20211214
  Transmission Date: 20220304
  Serious: No
  Sender: FDA-Public Use
  Company Number: US-GALDERMA-US2021019183

PATIENT

DRUGS (5)
  1. PROACTIV MD ADAPALENE ACNE TREATMENT [Suspect]
     Active Substance: ADAPALENE
     Indication: Skin hyperpigmentation
     Dosage: 1 DOSAGE FORM, BID, TWICE A DAY
     Route: 061
  2. PROACTIV MD DAILY OIL CONTROL SPF 30 [Suspect]
     Active Substance: AVOBENZONE\OCTISALATE\OCTOCRYLENE
     Indication: Skin hyperpigmentation
     Dosage: 1 DOSAGE FORM, BID, TWICE A DAY, CUTANEOUS SOLUTION
     Route: 061
  3. Proactiv MD Ultra Gentle Cleanser [Concomitant]
     Indication: Skin hyperpigmentation
     Dosage: 1 DOSAGE FORM, BID, TWICE A DAY
     Route: 061
  4. Proactiv MD Ultra Hydrating Moisturizer [Concomitant]
     Indication: Skin hyperpigmentation
     Dosage: 1 DOSAGE FORM, BID, TWICE A DAY
     Route: 061
  5. Proactiv Post Acne Scar Gel [Concomitant]
     Indication: Skin hyperpigmentation
     Dosage: 1 DOSAGE FORM, BID, TWICE A DAY
     Route: 061

REACTIONS (4)
  - Drug ineffective for unapproved indication [Recovered/Resolved]
  - Product use in unapproved indication [Recovered/Resolved]
  - Inappropriate schedule of product administration [Recovered/Resolved]
  - Overdose [Recovered/Resolved]
